FAERS Safety Report 13641525 (Version 1)
Quarter: 2017Q2

REPORT INFORMATION
  Report Type: Report from Study
  Country: None (occurrence: US)
  Receive Date: 20170612
  Receipt Date: 20170612
  Transmission Date: 20170830
  Serious: Yes (Other)
  Sender: FDA-Public Use
  Company Number: US-ABBVIE-17K-163-2003614-00

PATIENT
  Sex: Female
  Weight: 54.48 kg

DRUGS (2)
  1. HUMIRA [Suspect]
     Active Substance: ADALIMUMAB
     Indication: RHEUMATOID ARTHRITIS
     Route: 058
     Dates: start: 20150619, end: 201704
  2. HUMIRA [Suspect]
     Active Substance: ADALIMUMAB
     Indication: COLITIS

REACTIONS (4)
  - Neoplasm malignant [Recovered/Resolved]
  - Mycobacterium tuberculosis complex test positive [Not Recovered/Not Resolved]
  - Pain [Recovered/Resolved]
  - Haemorrhoids [Recovered/Resolved]

NARRATIVE: CASE EVENT DATE: 2016
